FAERS Safety Report 12678531 (Version 1)
Quarter: 2016Q3

REPORT INFORMATION
  Report Type: Spontaneous
  Country: CA (occurrence: CA)
  Receive Date: 20160823
  Receipt Date: 20160823
  Transmission Date: 20161109
  Serious: Yes (Other)
  Sender: FDA-Public Use
  Company Number: PHHY2016CA113427

PATIENT
  Age: 66 Year
  Sex: Male
  Weight: 80 kg

DRUGS (2)
  1. CICLOSPORIN SANDOZ [Suspect]
     Active Substance: CYCLOSPORINE
     Indication: PRODUCT USED FOR UNKNOWN INDICATION
     Dosage: 150 MG, BID
     Route: 048
  2. HYDROCHLOROTHIAZIDE. [Concomitant]
     Active Substance: HYDROCHLOROTHIAZIDE
     Indication: PRODUCT USED FOR UNKNOWN INDICATION
     Route: 065

REACTIONS (4)
  - Glomerular filtration rate decreased [Recovered/Resolved]
  - Hypertension [Recovered/Resolved]
  - Concomitant disease aggravated [Recovered/Resolved]
  - Hyperkalaemia [Recovered/Resolved]
